FAERS Safety Report 7223543-4 (Version None)
Quarter: 2011Q1

REPORT INFORMATION
  Report Type: 
  Country: None (occurrence: None)
  Receive Date: 20110112
  Receipt Date: 20100817
  Transmission Date: 20110831
  Serious: No
  Sender: FDA-Public Use
  Company Number: US-ALLERGAN-1010641US

PATIENT
  Age: 84 Year
  Sex: Female

DRUGS (4)
  1. UNSPECIFIED BLOOD PRESSURE MEDICATION [Concomitant]
     Indication: HYPERTENSION
  2. UNSPECIFIED CHOLESTEROL MEDICATION [Concomitant]
     Indication: BLOOD CHOLESTEROL INCREASED
     Dosage: UNK
  3. RESTASIS [Suspect]
     Indication: DRY EYE
     Dosage: UNK
     Route: 047
     Dates: start: 20100617, end: 20100801
  4. PRILOSEC [Concomitant]
     Indication: DYSPEPSIA

REACTIONS (2)
  - EYE IRRITATION [None]
  - DRUG INEFFECTIVE [None]
